FAERS Safety Report 4388485-0 (Version None)
Quarter: 2004Q2

REPORT INFORMATION
  Report Type: 
  Country: None (occurrence: None)
  Receive Date: 20040624
  Receipt Date: 20040611
  Transmission Date: 20050107
  Serious: Yes (Other)
  Sender: FDA-Public Use
  Company Number: 2004218588PE

PATIENT
  Age: 75 Year
  Sex: Female

DRUGS (2)
  1. CELEBREX [Suspect]
     Indication: LOCALISED OSTEOARTHRITIS
     Dosage: 200 MG, QD; ORAL
     Route: 048
     Dates: start: 20040309, end: 20040309
  2. DIPROSPAN (BETAMETHASONE SODIUM PHOSPHATE, BETAMETHASONE DIPROPIONATE) [Concomitant]

REACTIONS (4)
  - DIZZINESS [None]
  - EXCITABILITY [None]
  - HYPOTENSION [None]
  - RASH [None]
